FAERS Safety Report 7756963-X (Version None)
Quarter: 2011Q3

REPORT INFORMATION
  Report Type: 
  Country: None (occurrence: None)
  Receive Date: 20110916
  Receipt Date: 20110916
  Transmission Date: 20111222
  Serious: Yes (Death, Life-Threatening, Hospitalization, Disabling, Congenital Anomaly, Other)
  Sender: FDA-Public Use
  Company Number: None

PATIENT
  Sex: Female
  Weight: 77.11 kg

DRUGS (1)
  1. PENTAZOCINE AND NALOXONE HYDROCHLORIDE [Suspect]
     Indication: INTERVERTEBRAL DISC PROTRUSION
     Dosage: 1 TO 2 TABLETS
     Route: 048
     Dates: start: 20110913, end: 20110914

REACTIONS (7)
  - CHEST DISCOMFORT [None]
  - PRURITUS [None]
  - PHARYNGEAL OEDEMA [None]
  - FORMICATION [None]
  - NASOPHARYNGITIS [None]
  - URTICARIA [None]
  - FEELING ABNORMAL [None]
